FAERS Safety Report 12761764 (Version 5)
Quarter: 2017Q2

REPORT INFORMATION
  Report Type: Spontaneous
  Country: US (occurrence: US)
  Receive Date: 20160920
  Receipt Date: 20170414
  Transmission Date: 20170830
  Serious: No
  Sender: FDA-Public Use
  Company Number: US-PFIZER INC-2016350793

PATIENT
  Age: 63 Year
  Sex: Female
  Weight: 138 kg

DRUGS (24)
  1. XELJANZ XR [Suspect]
     Active Substance: TOFACITINIB CITRATE
     Dosage: 11 MG, 1X/DAY
     Dates: start: 20160718, end: 20161203
  2. OSTEO BI-FLEX [Concomitant]
     Active Substance: CHONDROITIN SULFATE A\GLUCOSAMINE
     Dosage: UNK UNK, 3X/DAY (400 MG-500 MG CAPSULE SIG- 3 EACH DAILY)
  3. GINSENG [Concomitant]
     Active Substance: ASIAN GINSENG
     Dosage: UNK UNK, 1X/DAY
  4. AIRBORNE [Concomitant]
     Active Substance: HERBALS\MINERALS\VITAMINS
     Dosage: 2 DF, 1X/DAY, (2 TABLETS ONCE A DAY )
  5. XELJANZ [Suspect]
     Active Substance: TOFACITINIB CITRATE
     Dosage: UNK
     Dates: start: 201606
  6. PYCNOGENOL [Concomitant]
     Active Substance: DIETARY SUPPLEMENT
     Dosage: UNK UNK, 1X/DAY, (ONCE A DAY)
  7. ARAVA [Concomitant]
     Active Substance: LEFLUNOMIDE
     Dosage: UNK
  8. RESTASIS [Concomitant]
     Active Substance: CYCLOSPORINE
     Dosage: 1 GTT, 2X/DAY(EVERY 12 HOURS FOR 30 DAYS )
     Route: 047
  9. VITAMIN C [Concomitant]
     Active Substance: ASCORBIC ACID
     Dosage: 1000 MG, 1X/DAY
  10. ACTONEL [Concomitant]
     Active Substance: RISEDRONATE SODIUM
     Dosage: 150 MG, UNK (1 TAB(S) ONCE A MONTH )
     Route: 048
  11. XELJANZ [Suspect]
     Active Substance: TOFACITINIB CITRATE
     Indication: RHEUMATOID ARTHRITIS
     Dosage: 5 MG, 2X/DAY
     Route: 048
     Dates: end: 201606
  12. NORCO [Concomitant]
     Active Substance: ACETAMINOPHEN\HYDROCODONE BITARTRATE
     Dosage: UNK UNK, AS NEEDED, [HYDROCODONE 325 MG]/[ACETAMINOPHEN 10 MG], (1 TAB(S) 1 EVERY 6 HOURS)
  13. CHEWABLE FIBER [Concomitant]
  14. MOTRIN [Concomitant]
     Active Substance: IBUPROFEN
     Dosage: 800 MG, AS NEEDED (1 EACH 3 TIMES A DAY AS NEEDED )
  15. ZANAFLEX [Concomitant]
     Active Substance: TIZANIDINE HYDROCHLORIDE
     Dosage: 4 MG, AS NEEDED, (AT BEDTIME PRN)
     Dates: start: 201505
  16. XELJANZ XR [Suspect]
     Active Substance: TOFACITINIB CITRATE
     Indication: RHEUMATOID ARTHRITIS
     Dosage: 11 MG, 1X/DAY
     Dates: start: 201606
  17. XELJANZ [Suspect]
     Active Substance: TOFACITINIB CITRATE
     Dosage: 5 MG, 2X/DAY
     Dates: start: 20150727
  18. XELJANZ [Suspect]
     Active Substance: TOFACITINIB CITRATE
     Dosage: 5 MG, 2X/DAY
     Route: 048
     Dates: start: 201610
  19. AZULFIDINE [Concomitant]
     Active Substance: SULFASALAZINE
  20. COSAMIN DS [Concomitant]
     Dosage: UNK UNK, 3X/DAY (: 400 MG-500 MG CAPSULE SIG- 3 EACH DAILY)
  21. ZANAFLEX [Concomitant]
     Active Substance: TIZANIDINE HYDROCHLORIDE
     Dosage: UNK, 1X/DAY
     Dates: start: 201606
  22. GABAPENTIN. [Concomitant]
     Active Substance: GABAPENTIN
     Dosage: 300 MG, 1X/DAY, (1 CAP(S) AT BEDTIME )
  23. GINKGO BILOBA [Concomitant]
     Active Substance: GINKGO
     Dosage: UNK UNK, 1X/DAY
  24. ASPIRIN 81 [Concomitant]
     Active Substance: ASPIRIN
     Dosage: 81 MG, 1X/DAY

REACTIONS (7)
  - Drug dose omission [Unknown]
  - Herpes zoster [Unknown]
  - Pain [Unknown]
  - Dry eye [Unknown]
  - Condition aggravated [Unknown]
  - Diarrhoea [Unknown]
  - Swelling [Unknown]
